FAERS Safety Report 11277184 (Version 5)
Quarter: 2016Q1

REPORT INFORMATION
  Report Type: Spontaneous
  Country: US (occurrence: US)
  Receive Date: 20150716
  Receipt Date: 20160317
  Transmission Date: 20160525
  Serious: No
  Sender: FDA-Public Use
  Company Number: US-ELI_LILLY_AND_COMPANY-US201506007810

PATIENT
  Age: 48 Year
  Sex: Female

DRUGS (7)
  1. ZYPREXA [Suspect]
     Active Substance: OLANZAPINE
     Indication: MANIA
     Dosage: 2.5 MG, QD
  2. ZYPREXA [Suspect]
     Active Substance: OLANZAPINE
     Indication: BIPOLAR DISORDER
     Dosage: UNK, PRN
     Route: 065
     Dates: start: 200804
  3. ZYPREXA [Suspect]
     Active Substance: OLANZAPINE
     Dosage: UNK, UNKNOWN
     Route: 065
  4. ZYPREXA [Suspect]
     Active Substance: OLANZAPINE
     Indication: AGITATION
     Dosage: 2.5 MG, QD
     Route: 065
     Dates: start: 2010
  5. ZYPREXA [Suspect]
     Active Substance: OLANZAPINE
     Dosage: UNK, UNKNOWN
     Route: 065
  6. ZYPREXA [Suspect]
     Active Substance: OLANZAPINE
     Dosage: UNK, UNKNOWN
     Route: 065
  7. ZYPREXA [Suspect]
     Active Substance: OLANZAPINE
     Indication: AFFECTIVE DISORDER
     Dosage: 1.25 MG, QD
     Route: 065
     Dates: start: 2013

REACTIONS (12)
  - Agitation [Recovering/Resolving]
  - Nasal congestion [Unknown]
  - Chronic throat clearing [Unknown]
  - Insomnia [Unknown]
  - Suspected counterfeit product [Unknown]
  - Drug ineffective [Unknown]
  - Sinus headache [Unknown]
  - Productive cough [Unknown]
  - Hypomania [Unknown]
  - Paraesthesia oral [Recovered/Resolved]
  - Hypersensitivity [Unknown]
  - Crying [Unknown]

NARRATIVE: CASE EVENT DATE: 20150617
